FAERS Safety Report 9207386 (Version 2)
Quarter: 2014Q1

REPORT INFORMATION
  Report Type: Spontaneous
  Country: US (occurrence: US)
  Receive Date: 20130403
  Receipt Date: 20140115
  Transmission Date: 20141002
  Serious: Yes (Hospitalization, Other)
  Sender: FDA-Public Use
  Company Number: US-BAYER-2013-040102

PATIENT
  Age: 27 Year
  Sex: Female

DRUGS (2)
  1. YAZ [Suspect]
     Dosage: UNK
     Dates: start: 20090325, end: 200908
  2. YASMIN [Suspect]
     Dosage: UNK
     Dates: start: 20090325, end: 200908

REACTIONS (7)
  - Cholelithiasis [None]
  - Pain [None]
  - Injury [None]
  - Cholecystitis acute [None]
  - Emotional distress [None]
  - Psychological trauma [None]
  - Anxiety [None]
